FAERS Safety Report 4777107-2 (Version None)
Quarter: 2005Q3

REPORT INFORMATION
  Report Type: 
  Country: None (occurrence: None)
  Receive Date: 20050922
  Receipt Date: 20050922
  Transmission Date: 20060218
  Serious: No
  Sender: FDA-Public Use
  Company Number: None

PATIENT
  Age: 47 Year
  Sex: Female

DRUGS (3)
  1. CARDIOLITE [Suspect]
     Indication: CARDIAC STRESS TEST
     Dosage: X1 IV
     Route: 042
     Dates: start: 20050713, end: 20050713
  2. ONDANSETRON [Suspect]
     Dosage: 8MG X1 IV
     Route: 042
     Dates: start: 20050713, end: 20050713
  3. DOPAMINE [Concomitant]

REACTIONS (1)
  - SWELLING FACE [None]
